FAERS Safety Report 19891126 (Version 2)
Quarter: 2021Q4

REPORT INFORMATION
  Report Type: Spontaneous
  Country: DE (occurrence: DE)
  Receive Date: 20210928
  Receipt Date: 20211013
  Transmission Date: 20220303
  Serious: Yes (Hospitalization)
  Sender: FDA-Public Use
  Company Number: NVSC2021DE212325

PATIENT
  Sex: Female
  Weight: 64.1 kg

DRUGS (30)
  1. ACETAMINOPHEN [Suspect]
     Active Substance: ACETAMINOPHEN
     Indication: Procedural pain
     Dosage: UNK
     Route: 065
     Dates: start: 20210817
  2. FILGOTINIB [Suspect]
     Active Substance: FILGOTINIB
     Indication: Rheumatoid arthritis
     Dosage: 200 MG, QD
     Route: 048
     Dates: start: 20180503, end: 20180512
  3. FILGOTINIB [Suspect]
     Active Substance: FILGOTINIB
     Dosage: 100 MG, QD
     Route: 048
     Dates: start: 20180503, end: 20180512
  4. FILGOTINIB [Suspect]
     Active Substance: FILGOTINIB
     Dosage: 100 MG, QD
     Route: 048
     Dates: start: 20180514, end: 20180901
  5. FILGOTINIB [Suspect]
     Active Substance: FILGOTINIB
     Dosage: 200 MG, QD
     Route: 048
     Dates: start: 20180514, end: 20180901
  6. FILGOTINIB [Suspect]
     Active Substance: FILGOTINIB
     Dosage: 100 MG, QD
     Route: 048
     Dates: start: 20180903, end: 20190226
  7. FILGOTINIB [Suspect]
     Active Substance: FILGOTINIB
     Dosage: 200 MG, QD
     Route: 048
     Dates: start: 20180903, end: 20190226
  8. FILGOTINIB [Suspect]
     Active Substance: FILGOTINIB
     Dosage: 100 MG, QD
     Route: 048
     Dates: start: 20190307, end: 20190318
  9. FILGOTINIB [Suspect]
     Active Substance: FILGOTINIB
     Dosage: 200 MG, QD
     Route: 048
     Dates: start: 20190402, end: 20190516
  10. FILGOTINIB [Suspect]
     Active Substance: FILGOTINIB
     Dosage: 100 MG, QD
     Route: 048
     Dates: start: 20190402, end: 20190516
  11. FILGOTINIB [Suspect]
     Active Substance: FILGOTINIB
     Dosage: 200 MG, QD
     Route: 048
     Dates: start: 20190611, end: 20190823
  12. FILGOTINIB [Suspect]
     Active Substance: FILGOTINIB
     Dosage: 100 MG, QD
     Route: 048
     Dates: start: 20190611, end: 20190823
  13. FILGOTINIB [Suspect]
     Active Substance: FILGOTINIB
     Dosage: 200 MG, QD
     Route: 048
     Dates: start: 20190828, end: 20190905
  14. FILGOTINIB [Suspect]
     Active Substance: FILGOTINIB
     Dosage: 100 MG, QD
     Route: 065
     Dates: start: 20190828, end: 20190905
  15. FILGOTINIB [Suspect]
     Active Substance: FILGOTINIB
     Dosage: 200 MG, QD
     Route: 048
     Dates: start: 20190927, end: 20210131
  16. FILGOTINIB [Suspect]
     Active Substance: FILGOTINIB
     Dosage: 100 MG, QD
     Route: 048
     Dates: start: 20190927, end: 20210131
  17. FILGOTINIB [Suspect]
     Active Substance: FILGOTINIB
     Dosage: 200 MG, QD
     Route: 065
     Dates: start: 20190307, end: 20190318
  18. FILGOTINIB [Suspect]
     Active Substance: FILGOTINIB
     Dosage: 100 MG, QD
     Route: 048
     Dates: start: 20190307, end: 20190318
  19. FILGOTINIB [Suspect]
     Active Substance: FILGOTINIB
     Dosage: 200 MG, QD
     Route: 048
     Dates: start: 20190402, end: 20190516
  20. FILGOTINIB [Suspect]
     Active Substance: FILGOTINIB
     Dosage: UNK
     Route: 048
     Dates: start: 20210201, end: 20210809
  21. FILGOTINIB [Suspect]
     Active Substance: FILGOTINIB
     Dosage: 200 MG, QD
     Route: 048
     Dates: start: 20210831
  22. EMBOLEX [Suspect]
     Active Substance: DIHYDROERGOTAMINE MESYLATE\HEPARIN SODIUM\LIDOCAINE HYDROCHLORIDE
     Indication: Thrombosis prophylaxis
     Dosage: UNK
     Route: 065
     Dates: start: 20210817
  23. PREDNISOLONE [Concomitant]
     Active Substance: PREDNISOLONE
     Indication: Product used for unknown indication
     Dosage: UNK
     Route: 065
     Dates: start: 20200711
  24. METHOTREXATE [Concomitant]
     Active Substance: METHOTREXATE
     Indication: Product used for unknown indication
     Dosage: UNK
     Route: 065
     Dates: start: 20200222
  25. PANTOPRAZOLE SODIUM [Concomitant]
     Active Substance: PANTOPRAZOLE SODIUM
     Indication: Product used for unknown indication
     Dosage: UNK
     Route: 065
     Dates: start: 2014
  26. HERBALS [Concomitant]
     Active Substance: HERBALS
     Indication: Product used for unknown indication
     Dosage: UNK
     Route: 065
     Dates: start: 20180718
  27. FOLIC ACID [Concomitant]
     Active Substance: FOLIC ACID
     Indication: Product used for unknown indication
     Dosage: UNK
     Route: 065
     Dates: start: 199507
  28. METAMIZOLE [Concomitant]
     Active Substance: METAMIZOLE
     Indication: Product used for unknown indication
     Dosage: UNK
     Route: 065
     Dates: start: 2014
  29. VIGANTOL OIL [Concomitant]
     Indication: Product used for unknown indication
     Dosage: UNK
     Route: 065
     Dates: start: 201609
  30. TELMISARTAN [Concomitant]
     Active Substance: TELMISARTAN
     Indication: Product used for unknown indication
     Dosage: UNK
     Route: 065
     Dates: start: 20200515

REACTIONS (1)
  - Spinal stenosis [Recovered/Resolved]

NARRATIVE: CASE EVENT DATE: 20210816
